FAERS Safety Report 6239533-4 (Version None)
Quarter: 2009Q2

REPORT INFORMATION
  Report Type: 
  Country: None (occurrence: None)
  Receive Date: 20090622
  Receipt Date: 20090609
  Transmission Date: 20091009
  Serious: Yes (Hospitalization)
  Sender: FDA-Public Use
  Company Number: US-TYCO HEALTHCARE/MALLINCKRODT-T200901167

PATIENT
  Sex: Female

DRUGS (8)
  1. OXYCODONE HCL [Suspect]
     Indication: PAIN
     Dosage: AT LEAST 10 TABLETS, PRN, QD
  2. OXYCONTIN [Suspect]
     Indication: PAIN
     Dosage: 3-4 TABS, QD
  3. MEMANTINE [Concomitant]
     Dosage: 10 MG, BID
  4. TRAZODONE HCL [Concomitant]
     Dosage: 50 MG, QD (QHS)
  5. LORAZEPAM [Concomitant]
     Dosage: 0.5 MG, UP TO 4X DAILY, PRN
  6. ACETAMINOPHEN [Concomitant]
     Dosage: 1000 MG, QID
  7. QUETIAPINE FUMARATE [Concomitant]
     Dosage: 25 MG, QD (QHS)
  8. QUETIAPINE FUMARATE [Concomitant]
     Dosage: 50 MG, TID (GRADUALLY INCREASED OVER A WEEK)

REACTIONS (1)
  - HYPERAESTHESIA [None]
